FAERS Safety Report 8796083 (Version 1)
Quarter: 2012Q4

REPORT INFORMATION
  Report Type: 
  Country: FR (occurrence: FR)
  Receive Date: 20120920
  Receipt Date: 20120920
  Transmission Date: 20130627
  Serious: Yes (Hospitalization, Other)
  Sender: FDA-Public Use
  Company Number: FR-BRISTOL-MYERS SQUIBB COMPANY-16950008

PATIENT
  Age: 86 Year
  Sex: Female

DRUGS (9)
  1. COUMADIN TABS 2 MG [Suspect]
     Indication: PHLEBITIS
     Dosage: scored tab. 1.5 tablets daily
7Aug12:2mg/2tabs/day
     Route: 048
     Dates: start: 20120807, end: 20120813
  2. CLAMOXYL [Suspect]
     Indication: ERYTHEMA
     Route: 048
     Dates: start: 201208, end: 201208
  3. DEBRIDAT [Suspect]
     Indication: PAIN
     Dosage: Flimcoated tabs
     Route: 048
     Dates: start: 20120719, end: 201208
  4. SPASFON-LYOC [Suspect]
     Indication: PAIN
     Route: 048
     Dates: start: 201207, end: 201208
  5. TRANSIPEG [Suspect]
     Indication: CONSTIPATION
     Dosage: powder for oral solution in sachet (macrogol 3350) 2 sachets in the morning
     Route: 048
     Dates: start: 201207, end: 201208
  6. DAFALGAN CAPS 500 MG [Concomitant]
     Indication: PAIN
     Route: 048
  7. NEURONTIN [Concomitant]
     Dosage: caps
     Route: 048
  8. RENITEC [Concomitant]
     Dosage: 1 tab/day
     Route: 048
  9. LOVENOX [Concomitant]
     Dosage: 1DF:1 inj
     Route: 058
     Dates: start: 20120805, end: 20120809

REACTIONS (3)
  - Urticaria [Recovered/Resolved]
  - Erythema [Recovered/Resolved]
  - International normalised ratio increased [Recovered/Resolved]
